FAERS Safety Report 9592445 (Version 1)
Quarter: 2013Q3

REPORT INFORMATION
  Report Type: Spontaneous
  Country: US (occurrence: None)
  Receive Date: 20130930
  Receipt Date: 20130930
  Transmission Date: 20140515
  Serious: Yes (Other)
  Sender: FDA-Public Use
  Company Number: 1000046518

PATIENT
  Age: 77 Year
  Sex: Female

DRUGS (6)
  1. LINZESS (LINACLOTIDE) (145 MICROGRAM, CAPSULES) [Suspect]
     Indication: IRRITABLE BOWEL SYNDROME
     Route: 048
     Dates: start: 20130705
  2. LINZESS (LINACLOTIDE) (145 MICROGRAM, CAPSULES) [Suspect]
     Indication: CONSTIPATION
     Route: 048
     Dates: start: 20130705
  3. LEVOTHYROXINE (LEVOTHYROXINE SODIUM) [Concomitant]
  4. AMLODIPINE (AMLODIPINE) [Concomitant]
  5. PAROXETINE (PAROXETINE) [Concomitant]
  6. PRAVASTATIN (PRAVASTATIN) [Concomitant]

REACTIONS (2)
  - Diarrhoea [None]
  - Flatulence [None]
